FAERS Safety Report 10863255 (Version 1)
Quarter: 2015Q1

REPORT INFORMATION
  Report Type: Spontaneous
  Country: MX (occurrence: MX)
  Receive Date: 20150224
  Receipt Date: 20150224
  Transmission Date: 20150721
  Serious: Yes (Death)
  Sender: FDA-Public Use
  Company Number: MX-ROXANE LABORATORIES, INC.-2015-RO-00295RO

PATIENT
  Age: 55 Year
  Sex: Male

DRUGS (6)
  1. MARAVIROC [Suspect]
     Active Substance: MARAVIROC
     Indication: IMMUNE RECONSTITUTION INFLAMMATORY SYNDROME
     Dosage: 600 MG
     Route: 065
  2. TENOFOVIR [Concomitant]
     Active Substance: TENOFOVIR
     Indication: HIV INFECTION
     Route: 065
  3. ATAZANAVIR/RITONAVIR [Concomitant]
     Indication: HIV INFECTION
     Route: 065
  4. ABACAVIR [Concomitant]
     Active Substance: ABACAVIR
     Indication: HIV INFECTION
     Route: 065
  5. EMTRICITABINE [Concomitant]
     Active Substance: EMTRICITABINE
     Indication: HIV INFECTION
     Route: 065
  6. DEXAMETHASONE. [Suspect]
     Active Substance: DEXAMETHASONE
     Indication: IMMUNE RECONSTITUTION INFLAMMATORY SYNDROME
     Dosage: 24 MG
     Route: 065

REACTIONS (2)
  - Respiratory failure [Fatal]
  - General physical health deterioration [Fatal]
